FAERS Safety Report 16452187 (Version 1)
Quarter: 2019Q2

REPORT INFORMATION
  Report Type: Spontaneous
  Country: DK (occurrence: DK)
  Receive Date: 20190619
  Receipt Date: 20190619
  Transmission Date: 20190711
  Serious: Yes (Life-Threatening, Hospitalization)
  Sender: FDA-Public Use
  Company Number: DK-MYLANLABS-2019M1056388

PATIENT
  Age: 47 Year
  Sex: Female

DRUGS (12)
  1. CIRCADIN [Concomitant]
     Active Substance: MELATONIN
     Indication: INSOMNIA
     Dosage: STYRKE: 2 MG: DOSIS: 2-3 TABLETTER P.N.
     Route: 048
     Dates: start: 20171205
  2. PREDNISOLONE. [Concomitant]
     Active Substance: PREDNISOLONE
     Indication: ADRENOCORTICAL STEROID THERAPY
     Dosage: STYRKE: 50 MG.
     Route: 048
     Dates: start: 20171223
  3. ETOPOSIDE. [Suspect]
     Active Substance: ETOPOSIDE
     Indication: SMALL CELL LUNG CANCER
     Dosage: 180 MILLIGRAM,STYRKE: 20 MG/ML.
     Route: 042
     Dates: start: 20181029
  4. OXABENZ [Concomitant]
     Active Substance: OXAZEPAM
     Indication: SEDATIVE THERAPY
     Dosage: STYRKE: 15 MG. DOSIS: 0,5 TABLET PN., H?JST 3 GANGE DAGLIGT.
     Route: 048
  5. PANTOLOC                           /01263201/ [Concomitant]
     Active Substance: PANTOPRAZOLE SODIUM
     Indication: GASTRIC ULCER
     Dosage: STYRKE: 40 MG.
     Route: 048
     Dates: start: 20171205
  6. AIROMIR                            /00139501/ [Concomitant]
     Active Substance: ALBUTEROL
     Indication: ASTHMA
     Dosage: STYRKE: 0,1 MG/DOSIS
     Route: 055
     Dates: start: 20150205
  7. TRUXAL                             /00012101/ [Concomitant]
     Active Substance: CHLORPROTHIXENE
     Indication: SEDATIVE THERAPY
     Dosage: STYRKE: 25 MG.
     Route: 048
     Dates: start: 20131017
  8. LITAREX                            /00033708/ [Concomitant]
     Active Substance: LITHIUM CITRATE
     Indication: DEPRESSION
     Dosage: STYRKE: 6 MMOL LI+.
     Route: 048
     Dates: start: 20130819
  9. METOCLOPRAMIDE. [Concomitant]
     Active Substance: METOCLOPRAMIDE
     Indication: ADVERSE DRUG REACTION
     Dosage: STYRKE: 10 MG. DOSIS: 3 TABLETTER PN., H?JST 4 GANGE DAGLIGT.
     Route: 048
     Dates: start: 20180803
  10. CARBOPLATIN. [Suspect]
     Active Substance: CARBOPLATIN
     Indication: SMALL CELL LUNG CANCER
     Dosage: 540 MILLIGRAM, TOTAL,STYRKE: 10 MG/ML. DOSIS: 540 MG SOM ENGANGSDOSIS.
     Route: 042
     Dates: start: 20181029
  11. NORITREN [Concomitant]
     Active Substance: NORTRIPTYLINE HYDROCHLORIDE
     Indication: DEPRESSION
     Dosage: STYRKE: 50 MG + 25 MG.
     Route: 048
     Dates: start: 20131018
  12. IMOZOP [Concomitant]
     Active Substance: ZOPICLONE
     Indication: INSOMNIA
     Dosage: STYRKE: 3,75 MG.
     Route: 048
     Dates: start: 20140828

REACTIONS (2)
  - Stenosis [Recovering/Resolving]
  - Acute myocardial infarction [Recovering/Resolving]

NARRATIVE: CASE EVENT DATE: 201811
